FAERS Safety Report 8905236 (Version 1)
Quarter: 2012Q4

REPORT INFORMATION
  Report Type: 
  Country: ES (occurrence: ES)
  Receive Date: 20121109
  Receipt Date: 20121109
  Transmission Date: 20130627
  Serious: Yes (Other)
  Sender: FDA-Public Use
  Company Number: ES-ASTRAZENECA-2012SE83192

PATIENT
  Sex: Female

DRUGS (6)
  1. SEROQUEL [Suspect]
     Indication: ABNORMAL BEHAVIOUR
     Route: 048
     Dates: start: 20120410, end: 20120413
  2. TEGRETOL [Interacting]
     Indication: MANIA
     Route: 048
     Dates: start: 20120411
  3. HALOPERIDOL [Interacting]
     Indication: ABNORMAL BEHAVIOUR
     Route: 048
     Dates: start: 20120411, end: 20120412
  4. METFORMINE [Concomitant]
     Indication: TYPE 2 DIABETES MELLITUS
     Route: 048
     Dates: start: 20120405, end: 20120412
  5. OLANZAPINE [Concomitant]
     Indication: ABNORMAL BEHAVIOUR
     Dosage: 15 DAILY, FREQUENCY TWICE A DAY
     Route: 048
     Dates: start: 20120405, end: 20120409
  6. ENALAPRIL [Concomitant]
     Indication: HYPERTENSION
     Route: 048
     Dates: start: 20120405, end: 20120409

REACTIONS (5)
  - Drug interaction [Unknown]
  - Hyponatraemia [Recovered/Resolved]
  - Orthostatic hypotension [Recovered/Resolved]
  - Syncope [Recovered/Resolved]
  - Bradycardia [Recovered/Resolved]
